FAERS Safety Report 19139157 (Version 3)
Quarter: 2021Q2

REPORT INFORMATION
  Report Type: Report from Study
  Country: FR (occurrence: FR)
  Receive Date: 20210415
  Receipt Date: 20210629
  Transmission Date: 20210717
  Serious: Yes (Hospitalization)
  Sender: FDA-Public Use
  Company Number: FR-ROCHE-2808143

PATIENT
  Age: 64 Year
  Sex: Male
  Weight: 73.5 kg

DRUGS (13)
  1. BACLOFENE [Concomitant]
     Active Substance: BACLOFEN
     Route: 048
     Dates: start: 202010
  2. PERMIXON [Concomitant]
     Active Substance: HERBALS\SAW PALMETTO
     Route: 048
  3. MOVICOL [Concomitant]
     Active Substance: POLYETHYLENE GLYCOL 3350\POTASSIUM CHLORIDE\SODIUM BICARBONATE\SODIUM CHLORIDE
     Dosage: 1 SACHET
     Route: 048
  4. METHYLPREDNISOLONE. [Concomitant]
     Active Substance: METHYLPREDNISOLONE
     Indication: PREMEDICATION
     Dosage: BASELINE WEEK 0 (1)
     Route: 042
     Dates: start: 20201230, end: 20201230
  5. METHYLPREDNISOLONE. [Concomitant]
     Active Substance: METHYLPREDNISOLONE
     Dosage: VISIT 3 WEEK 2 (1)
     Route: 042
     Dates: start: 20210113, end: 20210113
  6. POLARAMINE [Concomitant]
     Active Substance: DEXCHLORPHENIRAMINE MALEATE
     Indication: PREMEDICATION
     Dosage: BASELINE WEEK 0 (1)
     Route: 042
     Dates: start: 20201230, end: 20201230
  7. PFIZER?BIONTECH COVID?19 VACCINE [Concomitant]
     Active Substance: TOZINAMERAN
     Dosage: 1 OTHER ?2ND DOSE
     Route: 030
     Dates: start: 20210527, end: 20210527
  8. FAMPYRA [Concomitant]
     Active Substance: DALFAMPRIDINE
     Route: 048
     Dates: start: 201710
  9. PERFALGAN [Concomitant]
     Active Substance: ACETAMINOPHEN
     Indication: PREMEDICATION
     Dosage: BASELINE WEEK 0
     Route: 042
     Dates: start: 20201230, end: 20201230
  10. PERFALGAN [Concomitant]
     Active Substance: ACETAMINOPHEN
     Dosage: VISIT 3 WEEK 2 (1)
     Route: 042
     Dates: start: 20210113, end: 20210113
  11. PFIZER?BIONTECH COVID?19 VACCINE [Concomitant]
     Active Substance: TOZINAMERAN
     Dosage: 1 OTHER ?1ST DOSE
     Route: 030
     Dates: start: 20210423, end: 20210423
  12. OCRELIZUMAB. [Suspect]
     Active Substance: OCRELIZUMAB
     Indication: PROGRESSIVE MULTIPLE SCLEROSIS
     Dosage: ON 13/JAN/2021, HE RECEIVED MOST RECENT DOSE OF OCRELIZUMAB (300 MG) PRIOR TO SERIOUS ADVERSE EVENT
     Route: 042
     Dates: start: 20201230
  13. POLARAMINE [Concomitant]
     Active Substance: DEXCHLORPHENIRAMINE MALEATE
     Dosage: VISIT 3 WEEK 2 (1)
     Route: 042
     Dates: start: 20210113, end: 20210113

REACTIONS (1)
  - Sepsis [Recovered/Resolved]

NARRATIVE: CASE EVENT DATE: 20210324
